FAERS Safety Report 9997950 (Version 1)
Quarter: 2014Q1

REPORT INFORMATION
  Report Type: Spontaneous
  Country: US (occurrence: None)
  Receive Date: 20140224
  Receipt Date: 20140224
  Transmission Date: 20141002
  Serious: Yes (Hospitalization)
  Sender: FDA-Public Use
  Company Number: PHEH2013US002258

PATIENT
  Age: 36 Year
  Sex: Female

DRUGS (10)
  1. TOBI [Suspect]
     Indication: CYSTIC FIBROSIS
     Route: 055
     Dates: start: 1998
  2. TOBI [Suspect]
     Route: 055
     Dates: start: 1998
  3. PULMOZYME (DORNASE ALFA) [Concomitant]
  4. ALBUTEROL (SALBUTAMOL) [Concomitant]
  5. BIAXIN (CLARITHROMYCIN) [Concomitant]
  6. PANCREATIC ENZYMES (PANCRELIPASE) [Concomitant]
  7. PROTONIX (PANTOPRAZOLE SODIUM SESQUIHYDRATE) [Concomitant]
  8. MULTI-VIT (VITAMINS NOS) [Concomitant]
  9. POTASSIUM CITRATE (POTASSIUM CITRATE) [Concomitant]
  10. FOSAMAX  (ALENDRONATE SODIUM) [Concomitant]

REACTIONS (3)
  - Condition aggravated [None]
  - Incorrect route of drug administration [None]
  - Tinnitus [None]
